FAERS Safety Report 24370389 (Version 1)
Quarter: 2024Q3

REPORT INFORMATION
  Report Type: Spontaneous
  Country: FR (occurrence: FR)
  Receive Date: 20240927
  Receipt Date: 20240927
  Transmission Date: 20241017
  Serious: Yes (Hospitalization)
  Sender: JOHNSON AND JOHNSON
  Company Number: FR-JNJFOC-20240952076

PATIENT
  Age: 41 Year
  Sex: Female

DRUGS (1)
  1. STELARA [Suspect]
     Active Substance: USTEKINUMAB
     Indication: Crohn^s disease
     Dosage: NUMBER OF UNITS INVOLVED- 3
     Route: 040
     Dates: start: 20240717, end: 20240717

REACTIONS (2)
  - Hospitalisation [Unknown]
  - Psoriasis [Recovering/Resolving]
